FAERS Safety Report 11081091 (Version 1)
Quarter: 2015Q2

REPORT INFORMATION
  Report Type: Spontaneous
  Country: JP (occurrence: JP)
  Receive Date: 20150501
  Receipt Date: 20150501
  Transmission Date: 20150821
  Serious: Yes (Hospitalization)
  Sender: FDA-Public Use
  Company Number: JP-ROCHE-1571803

PATIENT
  Age: 54 Year
  Sex: Female

DRUGS (5)
  1. HERCEPTIN [Suspect]
     Active Substance: TRASTUZUMAB
     Indication: BREAST CANCER
     Route: 041
     Dates: start: 20140523, end: 20140523
  2. DOCETAXEL. [Suspect]
     Active Substance: DOCETAXEL
     Indication: BREAST CANCER
     Dosage: DOSAGE IS UNCERTAIN.
     Route: 041
  3. PERJETA [Suspect]
     Active Substance: PERTUZUMAB
     Indication: BREAST CANCER
     Dosage: FORM STRENGTH:  420MG/14ML
     Route: 041
     Dates: start: 20140523, end: 20140523
  4. PERJETA [Suspect]
     Active Substance: PERTUZUMAB
     Dosage: FOUR TIMES?MOST RECENT DOSE WAS ADMINISTERED ON 14/AUG/2014
     Route: 041
     Dates: start: 20140612
  5. HERCEPTIN [Suspect]
     Active Substance: TRASTUZUMAB
     Dosage: FOUR TIMES?MOST RECENT DOSE WAS ADMINISTERED ON 14/AUG/2014
     Route: 041
     Dates: start: 20140612

REACTIONS (2)
  - Febrile neutropenia [Recovered/Resolved]
  - Interstitial lung disease [Recovering/Resolving]

NARRATIVE: CASE EVENT DATE: 20140616
